FAERS Safety Report 8443285-7 (Version None)
Quarter: 2012Q2

REPORT INFORMATION
  Report Type: 
  Country: None (occurrence: None)
  Receive Date: 20120618
  Receipt Date: 20120605
  Transmission Date: 20120825
  Serious: Yes (Hospitalization, Other)
  Sender: FDA-Public Use
  Company Number: FR-BRISTOL-MYERS SQUIBB COMPANY-16669723

PATIENT
  Age: 86 Year
  Sex: Female

DRUGS (3)
  1. CORDARONE [Concomitant]
     Dosage: 1DF= CORDARONE 200-UNITS NOS
  2. LANSOPRAZOLE [Concomitant]
     Dosage: 1DF= LANZOR 15-UNITS NOS
  3. COUMADIN [Suspect]
     Indication: ATRIAL FIBRILLATION
     Dosage: INTERRUPTED ON 09-APR-2012 AND RESTARTED
     Route: 048
     Dates: start: 20100801

REACTIONS (2)
  - FALL [None]
  - SUBDURAL HAEMATOMA [None]
